FAERS Safety Report 6334139-0 (Version None)
Quarter: 2009Q3

REPORT INFORMATION
  Report Type: 
  Country: None (occurrence: None)
  Receive Date: 20090829
  Receipt Date: 20090714
  Transmission Date: 20100115
  Serious: No
  Sender: FDA-Public Use
  Company Number: US-ABBOTT-09P-163-0585175-00

PATIENT
  Sex: Male
  Weight: 87.168 kg

DRUGS (4)
  1. SIMCOR [Suspect]
     Indication: BLOOD CHOLESTEROL INCREASED
     Dosage: 500/20 MG AT BEDTIME
     Dates: start: 20090701
  2. ASPIRIN [Concomitant]
     Indication: HEADACHE
     Dosage: 1 OR 2 TABS 30 MINUTES PRIOR TO SIMCOR
  3. NATURE CLEANS [Concomitant]
     Indication: DRUG USE FOR UNKNOWN INDICATION
  4. NATURE CLEANS [Concomitant]

REACTIONS (3)
  - FLUSHING [None]
  - HEADACHE [None]
  - PRURITUS [None]
